FAERS Safety Report 24390532 (Version 2)
Quarter: 2025Q1

REPORT INFORMATION
  Report Type: Spontaneous
  Country: US (occurrence: US)
  Receive Date: 20241003
  Receipt Date: 20250101
  Transmission Date: 20250409
  Serious: No
  Sender: BRISTOL-MYERS SQUIBB COMPANY
  Company Number: US-BRISTOL-MYERS SQUIBB COMPANY-2024-155098

PATIENT
  Sex: Female

DRUGS (2)
  1. OPDIVO [Suspect]
     Active Substance: NIVOLUMAB
     Indication: Breast cancer female
     Dates: end: 202409
  2. YERVOY [Suspect]
     Active Substance: IPILIMUMAB
     Indication: Breast cancer female
     Dates: end: 202409

REACTIONS (1)
  - Off label use [Unknown]
